FAERS Safety Report 12788762 (Version 1)
Quarter: 2016Q3

REPORT INFORMATION
  Report Type: Report from Study
  Country: ZA (occurrence: ZA)
  Receive Date: 20160928
  Receipt Date: 20160928
  Transmission Date: 20161109
  Serious: Yes (Hospitalization, Other)
  Sender: FDA-Public Use
  Company Number: ZA-ABBVIE-16K-143-1661893-00

PATIENT
  Age: 34 Year
  Sex: Female
  Weight: 79.9 kg

DRUGS (1)
  1. HUMIRA [Suspect]
     Active Substance: ADALIMUMAB
     Indication: ANKYLOSING SPONDYLITIS
     Route: 058
     Dates: start: 2012, end: 201309

REACTIONS (9)
  - Peritonitis [Unknown]
  - Appendicitis [Recovered/Resolved]
  - Exposure during pregnancy [Unknown]
  - Herpes zoster [Recovered/Resolved]
  - Ankylosing spondylitis [Unknown]
  - Intestinal obstruction [Recovered/Resolved]
  - Abdominal sepsis [Unknown]
  - Live birth [Unknown]
  - Abdominal sepsis [Unknown]

NARRATIVE: CASE EVENT DATE: 201501
